FAERS Safety Report 18818660 (Version 2)
Quarter: 2021Q1

REPORT INFORMATION
  Report Type: Spontaneous
  Country: PL (occurrence: PL)
  Receive Date: 20210201
  Receipt Date: 20210210
  Transmission Date: 20210419
  Serious: Yes (Death, Life-Threatening, Hospitalization)
  Sender: FDA-Public Use
  Company Number: PL-CELGENEUS-POL-20210107283

PATIENT
  Age: 60 Year
  Sex: Male

DRUGS (23)
  1. APO RAMI [Concomitant]
     Indication: HYPERTENSION
     Dosage: 5 MILLIGRAM
     Route: 048
  2. TRIFAS COR [Concomitant]
     Indication: HYPERTENSION
     Dosage: 5 MILLIGRAM
     Route: 048
  3. HEVIRAN [Concomitant]
     Active Substance: ACYCLOVIR
     Indication: ANTIVIRAL PROPHYLAXIS
     Dosage: 800 MILLIGRAM
     Route: 048
     Dates: start: 20190705
  4. PANTOPRAZOLE [Concomitant]
     Active Substance: PANTOPRAZOLE
     Indication: PROPHYLAXIS AGAINST GASTROINTESTINAL ULCER
     Dosage: 20 MILLIGRAM
     Route: 048
     Dates: start: 20190705
  5. XIMVE [Concomitant]
     Indication: CARDIOVASCULAR EVENT PROPHYLAXIS
     Dosage: 20 MILLIGRAM
     Route: 048
  6. CALPEROS [Concomitant]
     Indication: HYPOCALCAEMIA
     Dosage: 10 IU (INTERNATIONAL UNIT)
     Route: 048
     Dates: start: 20190708
  7. ACARD [ACETYLSALICYLIC ACID] [Concomitant]
     Active Substance: ASPIRIN
     Indication: THROMBOSIS PROPHYLAXIS
     Dosage: 15 MILLIGRAM
     Route: 048
     Dates: start: 20190705
  8. MILURIT [Concomitant]
     Active Substance: ALLOPURINOL
     Indication: PROPHYLAXIS
     Dosage: 300 MILLIGRAM
     Route: 048
  9. MOLEKIN B12 [Concomitant]
     Indication: BENIGN PROSTATIC HYPERPLASIA
     Dosage: 2 DOSAGE FORMS
     Route: 048
  10. SIMVAS [Concomitant]
     Indication: HYPERLIPIDAEMIA
     Route: 048
     Dates: start: 20190626
  11. PARACETAMOL [Concomitant]
     Active Substance: ACETAMINOPHEN
     Indication: SPINAL FRACTURE
     Route: 048
     Dates: start: 20190705
  12. BORTEZOMIB. [Concomitant]
     Active Substance: BORTEZOMIB
     Indication: PLASMA CELL MYELOMA
     Route: 058
     Dates: start: 20190705, end: 20191230
  13. EBIVOL [Concomitant]
     Indication: HYPERTENSION
     Dosage: 2.5 MILLIGRAM
     Route: 048
  14. ALFABAX [Concomitant]
     Indication: SUPPLEMENTATION THERAPY
     Dosage: 10 MILLIGRAM
     Route: 048
  15. SPIRONOL [Concomitant]
     Active Substance: SPIRONOLACTONE
     Indication: OEDEMA PERIPHERAL
     Dosage: 25 MILLIGRAM
     Route: 048
     Dates: start: 20190719
  16. OXYDOLOR [Concomitant]
     Indication: BACK PAIN
     Route: 048
     Dates: start: 20200306
  17. DEXAMETHASONE. [Suspect]
     Active Substance: DEXAMETHASONE
     Indication: PLASMA CELL MYELOMA
     Route: 048
     Dates: start: 20190705, end: 20210111
  18. LENALIDOMIDE [Suspect]
     Active Substance: LENALIDOMIDE
     Indication: PLASMA CELL MYELOMA
     Route: 048
     Dates: start: 20190705, end: 20210115
  19. DARATUMUMAB [Concomitant]
     Active Substance: DARATUMUMAB
     Indication: PLASMA CELL MYELOMA
     Route: 058
  20. ACIDUM FOLICUM [Concomitant]
     Active Substance: FOLIC ACID
     Indication: PSORIATIC ARTHROPATHY
     Dosage: 15 MILLIGRAM
     Route: 048
  21. ASERTIN [Concomitant]
     Active Substance: SERTRALINE HYDROCHLORIDE
     Indication: DEPRESSED MOOD
     Dosage: 50 MILLIGRAM
     Route: 048
     Dates: start: 20200629
  22. TRANSTEC [Concomitant]
     Active Substance: BUPRENORPHINE
     Indication: BACK PAIN
     Route: 048
     Dates: start: 20191028
  23. NEOPARIN [Concomitant]
     Active Substance: ENOXAPARIN SODIUM
     Indication: VENOUS THROMBOSIS LIMB
     Dosage: 160 MILLIGRAM
     Route: 058
     Dates: start: 20201027

REACTIONS (1)
  - COVID-19 [Fatal]

NARRATIVE: CASE EVENT DATE: 20210116
